FAERS Safety Report 12957843 (Version 2)
Quarter: 2017Q2

REPORT INFORMATION
  Report Type: Spontaneous
  Country: US (occurrence: US)
  Receive Date: 20161118
  Receipt Date: 20170421
  Transmission Date: 20170830
  Serious: No
  Sender: FDA-Public Use
  Company Number: US-CELGENEUS-USA-2016113711

PATIENT
  Age: 72 Year
  Sex: Female

DRUGS (4)
  1. OTEZLA [Suspect]
     Active Substance: APREMILAST
     Indication: PSORIASIS
     Dosage: 60 MILLIGRAM
     Route: 048
     Dates: start: 20161026
  2. CLINDAMYCIN. [Concomitant]
     Active Substance: CLINDAMYCIN
     Indication: PSORIASIS
     Route: 065
     Dates: start: 201610, end: 201610
  3. OVACE SHAMPOO [Concomitant]
     Indication: PSORIASIS
     Route: 065
     Dates: start: 2016, end: 2016
  4. MINOCYCLINE [Concomitant]
     Active Substance: MINOCYCLINE\MINOCYCLINE HYDROCHLORIDE
     Indication: SEBORRHOEIC DERMATITIS
     Dosage: 100 MILLIGRAM
     Route: 048
     Dates: start: 20160916, end: 201610

REACTIONS (6)
  - Decreased appetite [Recovering/Resolving]
  - Fatigue [Recovered/Resolved]
  - Diarrhoea [Recovering/Resolving]
  - Nausea [Recovered/Resolved]
  - Vomiting [Recovered/Resolved]
  - Headache [Recovered/Resolved]

NARRATIVE: CASE EVENT DATE: 201611
